FAERS Safety Report 7687467-0 (Version None)
Quarter: 2011Q3

REPORT INFORMATION
  Report Type: 
  Country: None (occurrence: None)
  Receive Date: 20110816
  Receipt Date: 20110329
  Transmission Date: 20111222
  Serious: Yes (Hospitalization)
  Sender: FDA-Public Use
  Company Number: GB-BRISTOL-MYERS SQUIBB COMPANY-13969191

PATIENT
  Age: 70 Year
  Sex: Male

DRUGS (4)
  1. DACARBAZINE [Suspect]
     Indication: MALIGNANT MELANOMA
     Dosage: 1 DOSAGEFORM = 1720 (NO UNITS)
     Route: 042
     Dates: start: 20070831, end: 20071012
  2. OMEPRAZOLE [Concomitant]
     Dates: start: 20071031
  3. PREDNISOLONE [Concomitant]
     Dates: start: 20071031, end: 20071205
  4. IPILIMUMAB [Suspect]
     Indication: MALIGNANT MELANOMA
     Dosage: 1 DOSAGEFORM = 810 (NO UNITS)
     Route: 042
     Dates: start: 20070831, end: 20071012

REACTIONS (2)
  - ALANINE AMINOTRANSFERASE INCREASED [None]
  - ASPARTATE AMINOTRANSFERASE INCREASED [None]
